FAERS Safety Report 18553981 (Version 2)
Quarter: 2020Q4

REPORT INFORMATION
  Report Type: Report from Study
  Country: US (occurrence: US)
  Receive Date: 20201127
  Receipt Date: 20201130
  Transmission Date: 20210114
  Serious: Yes (Hospitalization, Other)
  Sender: FDA-Public Use
  Company Number: US-JNJFOC-20201139136

PATIENT
  Age: 63 Year
  Sex: Female
  Weight: 73 kg

DRUGS (3)
  1. INVEGA SUSTENNA [Suspect]
     Active Substance: PALIPERIDONE PALMITATE
  2. INVEGA SUSTENNA [Suspect]
     Active Substance: PALIPERIDONE PALMITATE
     Indication: PRODUCT USED FOR UNKNOWN INDICATION
     Route: 030
  3. INVEGA SUSTENNA [Suspect]
     Active Substance: PALIPERIDONE PALMITATE

REACTIONS (7)
  - Chest discomfort [Unknown]
  - Malaise [Not Recovered/Not Resolved]
  - Abdominal pain upper [Unknown]
  - COVID-19 [Unknown]
  - Back pain [Recovering/Resolving]
  - Decreased appetite [Not Recovered/Not Resolved]
  - Abnormal loss of weight [Not Recovered/Not Resolved]
